FAERS Safety Report 9733385 (Version 2)
Quarter: 2014Q1

REPORT INFORMATION
  Report Type: Spontaneous
  Country: NO (occurrence: NO)
  Receive Date: 20131205
  Receipt Date: 20140110
  Transmission Date: 20141002
  Serious: Yes (Death, Life-Threatening)
  Sender: FDA-Public Use
  Company Number: NO-B.I. PHARMACEUTICALS,INC./RIDGEFIELD-2013-BI-40349NO

PATIENT
  Age: 20 Year
  Sex: Female

DRUGS (21)
  1. CATAPRESAN [Suspect]
     Indication: DEPRESSION
     Dosage: DOSE PER APPLICATION: 25-50MG
     Route: 065
  2. TRUXAL [Suspect]
     Indication: PRODUCT USED FOR UNKNOWN INDICATION
     Route: 065
  3. CIPRAMIL [Suspect]
     Indication: PRODUCT USED FOR UNKNOWN INDICATION
     Route: 065
  4. NOZINAN [Suspect]
     Indication: DEPRESSION
     Route: 065
  5. SOBRIL [Suspect]
     Indication: PRODUCT USED FOR UNKNOWN INDICATION
     Route: 065
  6. VIVAL [Suspect]
     Indication: DEPRESSION
     Route: 065
  7. NOBLIGAN [Suspect]
     Indication: DEPRESSION
     Dosage: DOSE PER APPLICATION: 50-200MG
     Route: 065
  8. IMOVANE [Suspect]
     Indication: DEPRESSION
     Route: 048
  9. CIPRALEX [Suspect]
     Indication: DEPRESSION
     Route: 065
  10. SEROQUEL [Suspect]
     Indication: DEPRESSION
     Route: 065
  11. TRAMADOL [Suspect]
     Indication: DEPRESSION
     Route: 065
  12. ATARAX [Suspect]
     Indication: DEPRESSION
     Route: 065
  13. LAMICTAL [Suspect]
     Indication: DEPRESSION
     Route: 065
  14. REMERON [Suspect]
     Indication: DEPRESSION
     Route: 065
  15. ORFIRIL [Suspect]
     Indication: DEPRESSION
     Dosage: DOSE PER APPLICATION: 600 MG-1200 MG
     Route: 065
  16. RIVOTRIL [Suspect]
     Indication: DEPRESSION
     Route: 065
  17. SAROTEX [Suspect]
     Indication: DEPRESSION
     Route: 065
  18. OXYNORM [Suspect]
     Indication: DEPRESSION
     Dosage: DOSE PER APPLICATION: 5 MG-10 MG
     Route: 065
  19. PINEX FORTE [Suspect]
     Indication: DEPRESSION
     Dosage: DOSE PER APPLICATION: 500/30 MG AND PANDEINE
     Route: 065
  20. DIAMORPHINE [Concomitant]
  21. CYANOCOBALAMIN [Concomitant]

REACTIONS (2)
  - Completed suicide [Fatal]
  - Intentional self-injury [Unknown]
